FAERS Safety Report 7382915-8 (Version None)
Quarter: 2011Q1

REPORT INFORMATION
  Report Type: 
  Country: None (occurrence: None)
  Receive Date: 20110325
  Receipt Date: 20110325
  Transmission Date: 20110831
  Serious: Yes (Other)
  Sender: FDA-Public Use
  Company Number: None

PATIENT

DRUGS (1)
  1. MORPHINE SULFATE [Suspect]
     Dosage: 0.25ML PO
     Route: 048

REACTIONS (2)
  - PRODUCT DROPPER ISSUE [None]
  - MEDICATION ERROR [None]
